FAERS Safety Report 11983160 (Version 1)
Quarter: 2016Q1

REPORT INFORMATION
  Report Type: Spontaneous
  Country: CA (occurrence: CA)
  Receive Date: 20160201
  Receipt Date: 20160201
  Transmission Date: 20160526
  Serious: Yes (Hospitalization)
  Sender: FDA-Public Use
  Company Number: CA-SA-2016SA012571

PATIENT
  Age: 61 Year
  Sex: Male
  Weight: 78.5 kg

DRUGS (2)
  1. MOZOBIL [Suspect]
     Active Substance: PLERIXAFOR
     Indication: HAEMATOPOIETIC STEM CELL MOBILISATION
     Route: 058
     Dates: start: 20160117, end: 20160118
  2. G-CSF [Concomitant]
     Active Substance: GRANULOCYTE COLONY-STIMULATING FACTOR NOS
     Indication: PERIPHERAL BLOOD STEM CELL APHERESIS
     Dates: start: 20160115

REACTIONS (6)
  - Chest pain [Recovered/Resolved]
  - Troponin increased [Unknown]
  - Stress [Unknown]
  - Dyspnoea [Unknown]
  - Bone pain [Recovered/Resolved]
  - Electrocardiogram abnormal [Unknown]

NARRATIVE: CASE EVENT DATE: 201601
